FAERS Safety Report 21478932 (Version 2)
Quarter: 2022Q4

REPORT INFORMATION
  Report Type: Report from Study
  Country: DE (occurrence: None)
  Receive Date: 20221019
  Receipt Date: 20221117
  Transmission Date: 20230113
  Serious: Yes (Hospitalization)
  Sender: FDA-Public Use
  Company Number: DE-ROCHE-3174823

PATIENT
  Age: 84 Year
  Sex: Male
  Weight: 78.8 kg

DRUGS (94)
  1. OBINUTUZUMAB [Suspect]
     Active Substance: OBINUTUZUMAB
     Indication: Follicular lymphoma
     Dosage: ON 06/JUL/2022, MOST RECENT DOSE OF STUDY DRUG 1 PRIOR TO AE (1000 MG).?ON 05/SEP/2022 LAST DOSE OF
     Route: 042
     Dates: start: 20191228
  2. AMLODIPINE [Concomitant]
     Active Substance: AMLODIPINE BESYLATE
     Indication: Hypertension
  3. VALSARTAN [Concomitant]
     Active Substance: VALSARTAN
     Indication: Hypertension
     Dates: start: 20200110
  4. BISOPROLOL FUMARATE [Concomitant]
     Active Substance: BISOPROLOL FUMARATE
     Indication: Hypertension
  5. TORSEMIDE [Concomitant]
     Active Substance: TORSEMIDE
  6. TAMSULOSIN [Concomitant]
     Active Substance: TAMSULOSIN
     Indication: Benign prostatic hyperplasia
  7. PANTOZOL [Concomitant]
     Active Substance: PANTOPRAZOLE SODIUM
     Dates: start: 20191219
  8. ACYCLOVIR [Concomitant]
     Active Substance: ACYCLOVIR
     Dates: start: 20191229
  9. ACYCLOVIR [Concomitant]
     Active Substance: ACYCLOVIR
     Dates: start: 20200117, end: 20200305
  10. ACYCLOVIR [Concomitant]
     Active Substance: ACYCLOVIR
     Dates: start: 20200316, end: 20200427
  11. CALCET (GERMANY) [Concomitant]
     Indication: Chronic kidney disease
     Dates: end: 20191229
  12. CALCET (GERMANY) [Concomitant]
     Dates: start: 20200117, end: 20200427
  13. METRONIDAZOLE [Concomitant]
     Active Substance: METRONIDAZOLE
     Indication: Diverticulitis
     Dates: start: 20191223, end: 20200113
  14. METRONIDAZOLE [Concomitant]
     Active Substance: METRONIDAZOLE
     Dates: start: 20200227, end: 20200316
  15. METRONIDAZOLE [Concomitant]
     Active Substance: METRONIDAZOLE
     Dates: start: 20200208
  16. SULFAMETHOXAZOLE\TRIMETHOPRIM [Concomitant]
     Active Substance: SULFAMETHOXAZOLE\TRIMETHOPRIM
  17. CHOLECALCIFEROL [Concomitant]
     Active Substance: CHOLECALCIFEROL
  18. ENOXAPARIN SODIUM [Concomitant]
     Active Substance: ENOXAPARIN SODIUM
     Dates: start: 20191219
  19. MEROPENEM [Concomitant]
     Active Substance: MEROPENEM
     Indication: Infection
     Dates: start: 20200103, end: 20200104
  20. MEROPENEM [Concomitant]
     Active Substance: MEROPENEM
     Dates: start: 20200105, end: 20200110
  21. VANCOMYCIN [Concomitant]
     Active Substance: VANCOMYCIN
     Indication: Infection
     Dates: start: 20200106, end: 20200109
  22. NORFLOXACIN [Concomitant]
     Active Substance: NORFLOXACIN
     Indication: Infection
     Dates: start: 20200111, end: 20200111
  23. NORFLOXACIN [Concomitant]
     Active Substance: NORFLOXACIN
     Dates: start: 20200203
  24. SODIUM BICARBONATE [Concomitant]
     Active Substance: SODIUM BICARBONATE
     Indication: Peritonitis
     Dates: start: 20200108, end: 20200116
  25. KALINOR [Concomitant]
     Dates: start: 20200212
  26. FLUCONAZOLE [Concomitant]
     Active Substance: FLUCONAZOLE
     Dates: start: 20200130
  27. POTASSIUM CHLORIDE [Concomitant]
     Active Substance: POTASSIUM CHLORIDE
     Dates: start: 20200210, end: 20200210
  28. TAZOBACTAM [Concomitant]
     Active Substance: TAZOBACTAM
     Dates: start: 20200227, end: 20200304
  29. TAZOBACTAM [Concomitant]
     Active Substance: TAZOBACTAM
     Dates: start: 20200305, end: 20200311
  30. TAZOBACTAM [Concomitant]
     Active Substance: TAZOBACTAM
     Dates: start: 20200428, end: 20200508
  31. BISOPROLOL FUMARATE [Concomitant]
     Active Substance: BISOPROLOL FUMARATE
     Indication: Hypertension
     Dates: start: 20200313
  32. KALINOR-RETARD [Concomitant]
     Dates: start: 20200302, end: 20200427
  33. KALINOR-RETARD [Concomitant]
     Dates: start: 20200517
  34. FEBUXOSTAT [Concomitant]
     Active Substance: FEBUXOSTAT
     Dates: start: 20200412, end: 20200509
  35. FEBUXOSTAT [Concomitant]
     Active Substance: FEBUXOSTAT
     Dates: start: 20200516
  36. LINEZOLID [Concomitant]
     Active Substance: LINEZOLID
     Indication: Urinary tract infection
     Dates: start: 20200430, end: 20200501
  37. LINEZOLID [Concomitant]
     Active Substance: LINEZOLID
     Dates: start: 20200501, end: 20200506
  38. CALCIUM [Concomitant]
     Active Substance: CALCIUM
     Indication: Hypocalcaemia
     Dates: start: 20200504, end: 20200508
  39. CALCIUM [Concomitant]
     Active Substance: CALCIUM
     Dates: start: 20200509, end: 20200511
  40. ZOPICLONE [Concomitant]
     Active Substance: ZOPICLONE
     Indication: Insomnia
  41. CIPROBAY [Concomitant]
     Dates: start: 20200511, end: 20200516
  42. METAMIZOLE [Concomitant]
     Active Substance: METAMIZOLE
     Indication: Pain
  43. FOSRENOL [Concomitant]
     Active Substance: LANTHANUM CARBONATE
     Indication: Hyperphosphataemia
     Dates: start: 20200614, end: 20200617
  44. PREGABALIN [Concomitant]
     Active Substance: PREGABALIN
     Indication: Polyneuropathy
     Dates: start: 20200414
  45. NITRENDIPINE [Concomitant]
     Active Substance: NITRENDIPINE
     Dates: start: 20200303, end: 20200303
  46. CEFUROXIME [Concomitant]
     Active Substance: CEFUROXIME
     Indication: Diverticulitis
     Dates: start: 20220208, end: 20220216
  47. PREDNISOLONE [Concomitant]
     Active Substance: PREDNISOLONE
     Dates: start: 20191228, end: 20191228
  48. PREDNISOLONE [Concomitant]
     Active Substance: PREDNISOLONE
     Dates: start: 20200108, end: 20200108
  49. PREDNISOLONE [Concomitant]
     Active Substance: PREDNISOLONE
     Dates: start: 20200115, end: 20200115
  50. PREDNISOLONE [Concomitant]
     Active Substance: PREDNISOLONE
     Dates: start: 20200130, end: 20200130
  51. PREDNISOLONE [Concomitant]
     Active Substance: PREDNISOLONE
     Dates: start: 20200303, end: 20200303
  52. PREDNISOLONE [Concomitant]
     Active Substance: PREDNISOLONE
     Dates: start: 20200331, end: 20200331
  53. PREDNISOLONE [Concomitant]
     Active Substance: PREDNISOLONE
     Dates: start: 20200505, end: 20200505
  54. PREDNISOLONE [Concomitant]
     Active Substance: PREDNISOLONE
     Dates: start: 20200603, end: 20200603
  55. PREDNISOLONE [Concomitant]
     Active Substance: PREDNISOLONE
     Dates: start: 20200729, end: 20200729
  56. PREDNISOLONE [Concomitant]
     Active Substance: PREDNISOLONE
     Dates: start: 20200923, end: 20200923
  57. PREDNISOLONE [Concomitant]
     Active Substance: PREDNISOLONE
     Dates: start: 20201119, end: 20201119
  58. PREDNISOLONE [Concomitant]
     Active Substance: PREDNISOLONE
     Dates: start: 20210113, end: 20210113
  59. PREDNISOLONE [Concomitant]
     Active Substance: PREDNISOLONE
     Dates: start: 20210310, end: 20210310
  60. PREDNISOLONE [Concomitant]
     Active Substance: PREDNISOLONE
     Dates: start: 20210505, end: 20210505
  61. PREDNISOLONE [Concomitant]
     Active Substance: PREDNISOLONE
     Dates: start: 20210630, end: 20210630
  62. PREDNISOLONE [Concomitant]
     Active Substance: PREDNISOLONE
     Dates: start: 20210928, end: 20210928
  63. PREDNISOLONE [Concomitant]
     Active Substance: PREDNISOLONE
     Dates: start: 20211214, end: 20211214
  64. PREDNISOLONE [Concomitant]
     Active Substance: PREDNISOLONE
     Dates: start: 20220314, end: 20220314
  65. PREDNISOLONE [Concomitant]
     Active Substance: PREDNISOLONE
     Dates: start: 20220509, end: 20220509
  66. ACETAMINOPHEN [Concomitant]
     Active Substance: ACETAMINOPHEN
     Dates: start: 20191228, end: 20191228
  67. ACETAMINOPHEN [Concomitant]
     Active Substance: ACETAMINOPHEN
     Dates: start: 20200108, end: 20200108
  68. ACETAMINOPHEN [Concomitant]
     Active Substance: ACETAMINOPHEN
     Dates: start: 20200115, end: 20200115
  69. ACETAMINOPHEN [Concomitant]
     Active Substance: ACETAMINOPHEN
     Dates: start: 20200130, end: 20200130
  70. ACETAMINOPHEN [Concomitant]
     Active Substance: ACETAMINOPHEN
     Dates: start: 20200303, end: 20200303
  71. ACETAMINOPHEN [Concomitant]
     Active Substance: ACETAMINOPHEN
     Dates: start: 20200331, end: 20200331
  72. ACETAMINOPHEN [Concomitant]
     Active Substance: ACETAMINOPHEN
     Dates: start: 20200505, end: 20200505
  73. ACETAMINOPHEN [Concomitant]
     Active Substance: ACETAMINOPHEN
     Dates: start: 20200603, end: 20200603
  74. ACETAMINOPHEN [Concomitant]
     Active Substance: ACETAMINOPHEN
     Dates: start: 20200729, end: 20200729
  75. ACETAMINOPHEN [Concomitant]
     Active Substance: ACETAMINOPHEN
     Dates: start: 20200923, end: 20200923
  76. ACETAMINOPHEN [Concomitant]
     Active Substance: ACETAMINOPHEN
     Dates: start: 20201119, end: 20201119
  77. ACETAMINOPHEN [Concomitant]
     Active Substance: ACETAMINOPHEN
     Dates: start: 20210113, end: 20210113
  78. ACETAMINOPHEN [Concomitant]
     Active Substance: ACETAMINOPHEN
     Dates: start: 20210310, end: 20210310
  79. ACETAMINOPHEN [Concomitant]
     Active Substance: ACETAMINOPHEN
     Dates: start: 20210505, end: 20210505
  80. ACETAMINOPHEN [Concomitant]
     Active Substance: ACETAMINOPHEN
     Dates: start: 20210630, end: 20210630
  81. ACETAMINOPHEN [Concomitant]
     Active Substance: ACETAMINOPHEN
     Dates: start: 20210928, end: 20210928
  82. ACETAMINOPHEN [Concomitant]
     Active Substance: ACETAMINOPHEN
     Dates: start: 20211214, end: 20211214
  83. ACETAMINOPHEN [Concomitant]
     Active Substance: ACETAMINOPHEN
     Dates: start: 20220314, end: 20220314
  84. ACETAMINOPHEN [Concomitant]
     Active Substance: ACETAMINOPHEN
     Dates: start: 20220509, end: 20220509
  85. CLEMASTINE FUMARATE [Concomitant]
     Active Substance: CLEMASTINE FUMARATE
     Dates: start: 20191228, end: 20191228
  86. CLEMASTINE FUMARATE [Concomitant]
     Active Substance: CLEMASTINE FUMARATE
     Dates: start: 20200108, end: 20200108
  87. CLEMASTINE FUMARATE [Concomitant]
     Active Substance: CLEMASTINE FUMARATE
     Dates: start: 20200115, end: 20200115
  88. CLEMASTINE FUMARATE [Concomitant]
     Active Substance: CLEMASTINE FUMARATE
     Dates: start: 20200130, end: 20200130
  89. CLEMASTINE FUMARATE [Concomitant]
     Active Substance: CLEMASTINE FUMARATE
     Dates: start: 20200303, end: 20200303
  90. CLEMASTINE FUMARATE [Concomitant]
     Active Substance: CLEMASTINE FUMARATE
     Dates: start: 20200331, end: 20200331
  91. CLEMASTINE FUMARATE [Concomitant]
     Active Substance: CLEMASTINE FUMARATE
     Dates: start: 20200505, end: 20200505
  92. CLEMASTINE FUMARATE [Concomitant]
     Active Substance: CLEMASTINE FUMARATE
     Dates: start: 20200603, end: 20200603
  93. GRANISETRON [Concomitant]
     Active Substance: GRANISETRON
     Dates: start: 20191228, end: 20191228
  94. METHIMAZOLE [Concomitant]
     Active Substance: METHIMAZOLE
     Dates: start: 20220914

REACTIONS (1)
  - Thyroiditis [Recovering/Resolving]

NARRATIVE: CASE EVENT DATE: 20220829
